FAERS Safety Report 5003101-2 (Version None)
Quarter: 2006Q2

REPORT INFORMATION
  Report Type: 
  Country: None (occurrence: None)
  Receive Date: 20060516
  Receipt Date: 20060504
  Transmission Date: 20061013
  Serious: Yes (Hospitalization)
  Sender: FDA-Public Use
  Company Number: DE-ROCHE-446728

PATIENT
  Age: 62 Year

DRUGS (2)
  1. INTERFERON ALFA-2A [Suspect]
     Route: 065
  2. PROLEUKIN [Suspect]
     Route: 065

REACTIONS (2)
  - ASTHENIA [None]
  - DEHYDRATION [None]
